FAERS Safety Report 16115091 (Version 1)
Quarter: 2019Q1

REPORT INFORMATION
  Report Type: Spontaneous
  Country: US (occurrence: US)
  Receive Date: 20190325
  Receipt Date: 20190325
  Transmission Date: 20190418
  Serious: No
  Sender: FDA-Public Use
  Company Number: US-SMITH AND NEPHEW, INC-2018SMT00124

PATIENT
  Age: 77 Year
  Sex: Female
  Weight: 122.09 kg

DRUGS (12)
  1. MEGA RED KRILL OIL [Concomitant]
  2. LORATADINE. [Concomitant]
     Active Substance: LORATADINE
  3. RESCUE WITH RESVERATROL [Concomitant]
     Dosage: UNK, 4X/DAY
  4. HYDROCHLOROTHIAZIDE. [Concomitant]
     Active Substance: HYDROCHLOROTHIAZIDE
  5. LEG AND VEIN SUPPLEMENT [Concomitant]
     Dosage: UNK, 2X/DAY
  6. UNSPECIFIED SUPPLEMENT [Concomitant]
     Active Substance: DIETARY SUPPLEMENT\HERBALS
  7. UNSPECIFIED SULFUR DRUG [Suspect]
     Active Substance: UNSPECIFIED INGREDIENT
     Dosage: UNK
     Dates: start: 201808, end: 201809
  8. CELEXA [Concomitant]
     Active Substance: CITALOPRAM HYDROBROMIDE
  9. TURMERIC [Concomitant]
     Active Substance: HERBALS\TURMERIC
     Dosage: UNK, 2X/DAY
  10. COLLAGENASE SANTYL [Suspect]
     Active Substance: COLLAGENASE CLOSTRIDIUM HISTOLYTICUM
     Indication: WOUND
     Dosage: VERY SMALL AMOUNT, 1X/DAY
     Route: 061
     Dates: start: 20180827
  11. ALIVE (MULTIVITAMIN) [Concomitant]
     Dosage: 0.5 TABLETS, 1X/DAY
  12. MOVE (JOINT SUPPLEMENT) [Concomitant]

REACTIONS (6)
  - Peripheral swelling [Not Recovered/Not Resolved]
  - Urticaria [Recovering/Resolving]
  - Erythema [Recovering/Resolving]
  - Rash morbilliform [Recovering/Resolving]
  - Blister [Not Recovered/Not Resolved]
  - Off label use [Not Recovered/Not Resolved]

NARRATIVE: CASE EVENT DATE: 20180827
